FAERS Safety Report 20457637 (Version 1)
Quarter: 2022Q1

REPORT INFORMATION
  Report Type: Spontaneous
  Country: TW (occurrence: TW)
  Receive Date: 20220210
  Receipt Date: 20220210
  Transmission Date: 20220424
  Serious: Yes (Other)
  Sender: FDA-Public Use
  Company Number: TW-NOVARTISPH-NVSC2022TW028053

PATIENT
  Sex: Male

DRUGS (13)
  1. METHOTREXATE [Suspect]
     Active Substance: METHOTREXATE
     Indication: Surgery
     Dosage: UNK
     Route: 065
     Dates: start: 201908, end: 2021
  2. METHOTREXATE [Suspect]
     Active Substance: METHOTREXATE
     Indication: Neuromyelitis optica spectrum disorder
  3. ETOPOSIDE [Suspect]
     Active Substance: ETOPOSIDE
     Indication: Surgery
     Dosage: UNK
     Route: 065
     Dates: start: 201908
  4. ETOPOSIDE [Suspect]
     Active Substance: ETOPOSIDE
     Indication: Neuromyelitis optica spectrum disorder
  5. DEXAMETHASONE [Suspect]
     Active Substance: DEXAMETHASONE
     Indication: Surgery
     Dosage: UNK
     Route: 065
     Dates: start: 201908
  6. DEXAMETHASONE [Suspect]
     Active Substance: DEXAMETHASONE
     Indication: Neuromyelitis optica spectrum disorder
  7. CYCLOPHOSPHAMIDE [Concomitant]
     Active Substance: CYCLOPHOSPHAMIDE
     Indication: Surgery
     Dosage: UNK
     Route: 065
     Dates: start: 201908, end: 201912
  8. CYCLOPHOSPHAMIDE [Concomitant]
     Active Substance: CYCLOPHOSPHAMIDE
     Indication: Neuromyelitis optica spectrum disorder
  9. MESNA [Concomitant]
     Active Substance: MESNA
     Indication: Surgery
     Dosage: UNK
     Route: 065
     Dates: start: 201908, end: 201912
  10. ASPARAGINASE [Concomitant]
     Active Substance: ASPARAGINASE
     Indication: Surgery
     Dosage: UNK
     Route: 065
     Dates: start: 201908, end: 201912
  11. IFOSFAMIDE [Concomitant]
     Active Substance: IFOSFAMIDE
     Indication: Neuromyelitis optica spectrum disorder
     Dosage: UNK
     Route: 065
     Dates: start: 20210218
  12. CARBOPLATIN [Concomitant]
     Active Substance: CARBOPLATIN
     Indication: Neuromyelitis optica spectrum disorder
     Dosage: UNK
     Route: 065
     Dates: start: 20210218
  13. PREDNISONE [Concomitant]
     Active Substance: PREDNISONE
     Indication: Product used for unknown indication
     Route: 065

REACTIONS (4)
  - Graft versus host disease in skin [Unknown]
  - Graft versus host disease in liver [Unknown]
  - Graft versus host disease in eye [Unknown]
  - Skin disorder [Unknown]
